FAERS Safety Report 17414405 (Version 2)
Quarter: 2020Q1

REPORT INFORMATION
  Report Type: Spontaneous
  Country: US (occurrence: US)
  Receive Date: 20200213
  Receipt Date: 20200317
  Transmission Date: 20200409
  Serious: No
  Sender: FDA-Public Use
  Company Number: US-PFIZER INC-2020062723

PATIENT
  Age: 70 Year
  Sex: Female

DRUGS (3)
  1. KERLONE [Concomitant]
     Active Substance: BETAXOLOL HYDROCHLORIDE
     Indication: HYPERTENSION
     Dosage: 10 MG, DAILY
     Dates: start: 1979
  2. DAYPRO [Suspect]
     Active Substance: OXAPROZIN
     Indication: OSTEOARTHRITIS
     Dosage: UNK, SINGLE (ONCE 20 YEARS AGO)
     Route: 048
  3. SYNTHROID [Concomitant]
     Active Substance: LEVOTHYROXINE SODIUM
     Indication: HYPOTHYROIDISM
     Dosage: 0.075 MG, DAILY
     Dates: start: 1970

REACTIONS (3)
  - Drug hypersensitivity [Unknown]
  - Feeling abnormal [Recovered/Resolved]
  - Back disorder [Recovered/Resolved]
